FAERS Safety Report 4504994-5 (Version None)
Quarter: 2004Q4

REPORT INFORMATION
  Report Type: 
  Country: None (occurrence: None)
  Receive Date: 20041015
  Receipt Date: 20031023
  Transmission Date: 20050328
  Serious: Yes (Life-Threatening, Hospitalization, Other)
  Sender: FDA-Public Use
  Company Number: 2003114318

PATIENT
  Sex: Male

DRUGS (1)
  1. NEURONTIN [Suspect]
     Indication: ILL-DEFINED DISORDER
     Dosage: 3200 OR 3800 MG TID

REACTIONS (5)
  - INTENTIONAL OVERDOSE [None]
  - MEDICATION ERROR [None]
  - NEGATIVE THOUGHTS [None]
  - SUICIDAL IDEATION [None]
  - SUICIDE ATTEMPT [None]
